FAERS Safety Report 9648277 (Version 2)
Quarter: 2014Q1

REPORT INFORMATION
  Report Type: Other
  Country: GB (occurrence: GB)
  Receive Date: 20131028
  Receipt Date: 20140129
  Transmission Date: 20141002
  Serious: Yes (Life-Threatening, Hospitalization, Disabling)
  Sender: FDA-Public Use
  Company Number: GB-SUN PHARMACEUTICAL INDUSTRIES LTD-2013SUN04898

PATIENT
  Age: 27 Year
  Sex: Male

DRUGS (3)
  1. VENLAFAXINE HYDROCHLORIDE 25MG TABLET [Suspect]
     Indication: DEPRESSION
     Dosage: 75 MG AT 2 DF, DAILY
     Route: 048
     Dates: start: 20121121
  2. VENLAFAXINE HYDROCHLORIDE 25MG TABLET [Suspect]
     Dosage: 150 MG AT 2 DF, DAILY
     Route: 048
     Dates: start: 20130101, end: 20131004
  3. QUETIAPINE [Suspect]
     Indication: DEPRESSION
     Dosage: 2 DF, DAILY
     Route: 048
     Dates: start: 20110516, end: 20130930

REACTIONS (7)
  - Congestive cardiomyopathy [Not Recovered/Not Resolved]
  - Cardiomegaly [Not Recovered/Not Resolved]
  - Cardiomyopathy [Not Recovered/Not Resolved]
  - Dyspnoea exertional [Not Recovered/Not Resolved]
  - Liver function test abnormal [Not Recovered/Not Resolved]
  - Dyspnoea [Not Recovered/Not Resolved]
  - Oedema peripheral [Not Recovered/Not Resolved]
